FAERS Safety Report 25235300 (Version 1)
Quarter: 2025Q2

REPORT INFORMATION
  Report Type: Spontaneous
  Country: US (occurrence: US)
  Receive Date: 20250424
  Receipt Date: 20250424
  Transmission Date: 20250716
  Serious: Yes (Other)
  Sender: QUVA PHARMA
  Company Number: US-QuVa Pharma-2175501

PATIENT
  Age: 66 Year
  Sex: Female
  Weight: 80.7 kg

DRUGS (1)
  1. CLONIDINE\EPINEPHRINE\KETOROLAC\ROPIVACAINE [Suspect]
     Active Substance: CLONIDINE\EPINEPHRINE\KETOROLAC\ROPIVACAINE
     Indication: Knee arthroplasty
     Dates: start: 20250319, end: 20250319

REACTIONS (1)
  - Soft tissue necrosis [Recovered/Resolved with Sequelae]
